FAERS Safety Report 16372797 (Version 1)
Quarter: 2019Q2

REPORT INFORMATION
  Report Type: Spontaneous
  Country: CN (occurrence: CN)
  Receive Date: 20190530
  Receipt Date: 20190530
  Transmission Date: 20190711
  Serious: Yes (Disabling)
  Sender: FDA-Public Use
  Company Number: CN-SA-2019SA144649

PATIENT
  Age: 85 Year
  Sex: Female
  Weight: 50 kg

DRUGS (7)
  1. RABEPRAZOLE SODIUM. [Suspect]
     Active Substance: RABEPRAZOLE SODIUM
     Indication: PROPHYLAXIS
     Dosage: 20 MG, QD
     Route: 041
     Dates: start: 20190427, end: 20190513
  2. EXACIN [SISOMICIN SULFATE] [Suspect]
     Active Substance: SISOMICIN SULFATE
     Indication: EMPHYSEMA
  3. CELECOXIB. [Suspect]
     Active Substance: CELECOXIB
     Indication: PAIN
     Dosage: 0.2 G, QD
     Route: 048
     Dates: start: 20190508, end: 20190513
  4. CELECOXIB. [Suspect]
     Active Substance: CELECOXIB
     Indication: INFLAMMATION
  5. TAMSULOSIN HYDROCHLORIDE. [Suspect]
     Active Substance: TAMSULOSIN HYDROCHLORIDE
     Indication: MUSCLE TIGHTNESS
     Dosage: 0.2 MG, QD
     Route: 048
     Dates: start: 20190427, end: 20190513
  6. CELECOXIB. [Suspect]
     Active Substance: CELECOXIB
     Indication: INFECTION
  7. EXACIN [SISOMICIN SULFATE] [Suspect]
     Active Substance: SISOMICIN SULFATE
     Indication: BRONCHITIS CHRONIC
     Dosage: 0.4 G, QD
     Route: 041
     Dates: start: 20190427, end: 20190513

REACTIONS (1)
  - Hepatic function abnormal [Unknown]

NARRATIVE: CASE EVENT DATE: 20190512
